FAERS Safety Report 6421615-5 (Version None)
Quarter: 2009Q4

REPORT INFORMATION
  Report Type: 
  Country: None (occurrence: None)
  Receive Date: 20091030
  Receipt Date: 20091026
  Transmission Date: 20100525
  Serious: Yes (Death, Hospitalization)
  Sender: FDA-Public Use
  Company Number: US-JNJFOC-20091008366

PATIENT
  Age: 44 Year
  Sex: Male

DRUGS (5)
  1. INTELENCE [Suspect]
     Indication: HIV INFECTION
     Route: 048
  2. ZIAGEN [Concomitant]
     Indication: HIV INFECTION
  3. EPIVIR [Concomitant]
     Indication: HIV INFECTION
  4. LEXIVA [Concomitant]
     Indication: HIV INFECTION
  5. ISENTRESS [Concomitant]
     Indication: HIV INFECTION

REACTIONS (1)
  - HEPATITIS [None]
